FAERS Safety Report 12030513 (Version 2)
Quarter: 2016Q1

REPORT INFORMATION
  Report Type: Spontaneous
  Country: US (occurrence: US)
  Receive Date: 20160207
  Receipt Date: 20160215
  Transmission Date: 20160526
  Serious: No
  Sender: FDA-Public Use
  Company Number: US-ANGELINI-1047426

PATIENT
  Age: 67 Year
  Sex: Male

DRUGS (10)
  1. PRAMIPEXOLE DIHYDROCHLORIDE. [Concomitant]
     Active Substance: PRAMIPEXOLE DIHYDROCHLORIDE
  2. TRAZODONE [Suspect]
     Active Substance: TRAZODONE HYDROCHLORIDE
     Route: 048
  3. OLEPTRO [Suspect]
     Active Substance: TRAZODONE HYDROCHLORIDE
     Indication: INSOMNIA
     Route: 048
  4. TIZANIDINE HYDROCHLORIDE. [Concomitant]
     Active Substance: TIZANIDINE HYDROCHLORIDE
  5. PREGABALIN. [Concomitant]
     Active Substance: PREGABALIN
  6. LIDOCAINE. [Concomitant]
     Active Substance: LIDOCAINE
     Route: 042
     Dates: start: 201105
  7. TRAMADOL HYDROCHLORIDE. [Concomitant]
     Active Substance: TRAMADOL HYDROCHLORIDE
  8. CLONAZEPAM. [Concomitant]
     Active Substance: CLONAZEPAM
  9. ESZOPICLONE. [Concomitant]
     Active Substance: ESZOPICLONE
  10. CELECOXIB. [Concomitant]
     Active Substance: CELECOXIB

REACTIONS (6)
  - Back pain [Unknown]
  - Initial insomnia [Unknown]
  - Off label use [Unknown]
  - Orthostatic hypotension [Unknown]
  - Pain in extremity [Unknown]
  - Pain [Unknown]
